FAERS Safety Report 11703960 (Version 1)
Quarter: 2015Q4

REPORT INFORMATION
  Report Type: Spontaneous
  Country: US (occurrence: None)
  Receive Date: 20151105
  Receipt Date: 20151105
  Transmission Date: 20160304
  Serious: No
  Sender: FDA-Public Use
  Company Number: None

PATIENT
  Age: 25 Year
  Sex: Female
  Weight: 93.9 kg

DRUGS (6)
  1. LUPRON [Suspect]
     Active Substance: LEUPROLIDE ACETATE
     Indication: ENDOMETRIOSIS
     Dosage: 3.75
     Route: 030
     Dates: start: 20151030, end: 20151104
  2. CLONAZEPAM. [Concomitant]
     Active Substance: CLONAZEPAM
  3. FRANKENSCENCE [Concomitant]
  4. GNC PROTEIN POWDER [Concomitant]
  5. KEPPRA [Concomitant]
     Active Substance: LEVETIRACETAM
  6. KETOROLAC [Concomitant]
     Active Substance: KETOROLAC\KETOROLAC TROMETHAMINE

REACTIONS (6)
  - Diarrhoea [None]
  - Cold sweat [None]
  - Nausea [None]
  - Night sweats [None]
  - Chills [None]
  - Tremor [None]

NARRATIVE: CASE EVENT DATE: 20151030
